FAERS Safety Report 7979148-0 (Version None)
Quarter: 2011Q4

REPORT INFORMATION
  Report Type: 
  Country: None (occurrence: None)
  Receive Date: 20111214
  Receipt Date: 20111202
  Transmission Date: 20120403
  Serious: Yes (Other)
  Sender: FDA-Public Use
  Company Number: GB-JNJFOC-20111205002

PATIENT
  Sex: Male

DRUGS (1)
  1. PALEXIA [Suspect]
     Indication: PHANTOM PAIN
     Dosage: THE PRESCRIPTION WAS SUPPOSED TO BE 150MG OF TAPENTADOL IN THE MORNING AND 200MG IN THE EVENING
     Route: 048
     Dates: start: 20110101

REACTIONS (3)
  - DRUG DISPENSING ERROR [None]
  - THERAPEUTIC RESPONSE UNEXPECTED [None]
  - OVERDOSE [None]
